FAERS Safety Report 4649642-9 (Version None)
Quarter: 2005Q2

REPORT INFORMATION
  Report Type: 
  Country: None (occurrence: None)
  Receive Date: 20050502
  Receipt Date: 20050421
  Transmission Date: 20051028
  Serious: Yes (Death)
  Sender: FDA-Public Use
  Company Number: JP-JNJFOC-20050400666

PATIENT
  Sex: Male
  Weight: 60 kg

DRUGS (15)
  1. FENTANYL [Suspect]
     Route: 062
     Dates: start: 20050323, end: 20050401
  2. FENTANYL [Suspect]
     Indication: CANCER PAIN
     Route: 062
     Dates: start: 20050323, end: 20050401
  3. DUROTEP [Suspect]
     Indication: CANCER PAIN
     Route: 062
  4. RABEPRAZOLE SODIUM [Concomitant]
     Route: 049
  5. NOVAMIN [Concomitant]
     Route: 049
  6. LOXOPROFEN SODIUM [Concomitant]
     Indication: CANCER PAIN
     Dosage: 180 MG DAILY
     Route: 049
  7. CELESTONE [Concomitant]
     Indication: PRE-EXISTING CONDITION IMPROVED
     Dosage: 1 MG DAILY
     Route: 049
  8. RITALIN [Concomitant]
     Indication: EMOTIONAL DISORDER
     Dosage: 10 MG DAILY
     Route: 049
  9. HOKUNALIN TAPE [Concomitant]
     Indication: BRONCHOSPASM
     Dosage: 2 MG (1 SHEET DAILY)
     Route: 062
  10. MAGNESIUM OXIDE [Concomitant]
     Indication: CONSTIPATION
     Dosage: 1.5 G DAILY
     Route: 049
  11. RHIZOMA RHEI [Concomitant]
     Indication: CONSTIPATION
     Dosage: 1.5 G DAILY
     Route: 049
  12. ISODINE GARGLE [Concomitant]
     Indication: INFECTION PROPHYLAXIS
     Dosage: AT BEDTIME
     Route: 049
  13. NERIPROCT SUPPOSITORY [Concomitant]
     Route: 054
  14. NERIPROCT SUPPOSITORY [Concomitant]
     Indication: ANAL FISSURE
     Route: 054
  15. MORPHINE HCL ELIXIR [Concomitant]
     Dosage: 1 ML DAILY
     Route: 055

REACTIONS (1)
  - MALIGNANT NEOPLASM PROGRESSION [None]
